FAERS Safety Report 19379589 (Version 2)
Quarter: 2023Q4

REPORT INFORMATION
  Report Type: Other
  Country: DE (occurrence: None)
  Receive Date: 20210607
  Receipt Date: 20231201
  Transmission Date: 20240109
  Serious: Yes (Other)
  Sender: FDA-Public Use
  Company Number: DE-SAPTALIS PHARMACEUTICALS,LLC-000087

PATIENT
  Sex: Male

DRUGS (16)
  1. TRIAMCINOLONE ACETONIDE [Suspect]
     Active Substance: TRIAMCINOLONE ACETONIDE
     Indication: Multiple sclerosis
     Dosage: INTRATHECAL INJECTIONS
     Route: 037
  2. TRIAMCINOLONE ACETONIDE [Suspect]
     Active Substance: TRIAMCINOLONE ACETONIDE
     Indication: Multiple sclerosis
     Dosage: CYCLE 11, THIRD DOSE  (80 MG) INTRATHECAL INJECTIONS
     Route: 037
  3. TRIAMCINOLONE ACETONIDE [Suspect]
     Active Substance: TRIAMCINOLONE ACETONIDE
     Indication: Multiple sclerosis
     Dosage: CYCLE 5, SECOND DOSE  (60 MG) INTRATHECAL INJECTIONS
     Route: 037
  4. TRIAMCINOLONE ACETONIDE [Suspect]
     Active Substance: TRIAMCINOLONE ACETONIDE
     Indication: Multiple sclerosis
     Dosage: CYCLE 5, THIRD DOSE  (60 MG) INTRATHECAL INJECTIONS
     Route: 037
  5. TRIAMCINOLONE ACETONIDE [Suspect]
     Active Substance: TRIAMCINOLONE ACETONIDE
     Indication: Multiple sclerosis
     Dosage: CYCLE 5, SECOND DOSE  (40 MG) INTRATHECAL INJECTIONS
     Route: 037
  6. TRIAMCINOLONE ACETONIDE [Suspect]
     Active Substance: TRIAMCINOLONE ACETONIDE
     Indication: Multiple sclerosis
     Dosage: CYCLE 5, FIRST DOSE  (40 MG) INTRATHECAL INJECTIONS
     Route: 037
  7. TRIAMCINOLONE ACETONIDE [Suspect]
     Active Substance: TRIAMCINOLONE ACETONIDE
     Indication: Multiple sclerosis
     Dosage: CYCLE 4, FOURTH DOSE  (60 MG) INTRATHECAL INJECTIONS
     Route: 037
  8. TRIAMCINOLONE ACETONIDE [Suspect]
     Active Substance: TRIAMCINOLONE ACETONIDE
     Indication: Multiple sclerosis
     Dosage: CYCLE 4, THIRD DOSE  (60 MG) INTRATHECAL INJECTIONS
     Route: 037
  9. TRIAMCINOLONE ACETONIDE [Suspect]
     Active Substance: TRIAMCINOLONE ACETONIDE
     Indication: Multiple sclerosis
     Dosage: CYCLE 4, SECOND DOSE  (60 MG) INTRATHECAL INJECTIONS
     Route: 037
  10. TRIAMCINOLONE ACETONIDE [Suspect]
     Active Substance: TRIAMCINOLONE ACETONIDE
     Indication: Multiple sclerosis
     Dosage: CYCLE 4, FIRST DOSE  (60 MG) INTRATHECAL INJECTIONS
     Route: 037
  11. TRIAMCINOLONE ACETONIDE [Suspect]
     Active Substance: TRIAMCINOLONE ACETONIDE
     Indication: Multiple sclerosis
     Dosage: CYCLE 11, SECOND DOSE  (60 MG) INTRATHECAL INJECTIONS
     Route: 037
  12. TRIAMCINOLONE ACETONIDE [Suspect]
     Active Substance: TRIAMCINOLONE ACETONIDE
     Indication: Multiple sclerosis
     Dosage: CYCLE 11, FIRSRT DOSE  (60 MG) INTRATHECAL INJECTIONS
     Route: 037
  13. TRIAMCINOLONE ACETONIDE [Suspect]
     Active Substance: TRIAMCINOLONE ACETONIDE
     Indication: Multiple sclerosis
     Dosage: CYCLE 10, FOURTH DOSE  (40 MG) INTRATHECAL INJECTIONS
     Route: 037
  14. TRIAMCINOLONE ACETONIDE [Suspect]
     Active Substance: TRIAMCINOLONE ACETONIDE
     Indication: Multiple sclerosis
     Dosage: CYCLE 10, THIRD DOSE  (80 MG) INTRATHECAL INJECTIONS
     Route: 037
  15. TRIAMCINOLONE ACETONIDE [Suspect]
     Active Substance: TRIAMCINOLONE ACETONIDE
     Indication: Multiple sclerosis
     Dosage: CYCLE 10, SECOND DOSE  (80 MG) INTRATHECAL INJECTIONS
     Route: 037
  16. TRIAMCINOLONE ACETONIDE [Suspect]
     Active Substance: TRIAMCINOLONE ACETONIDE
     Indication: Multiple sclerosis
     Dosage: CYCLE 10, FIRST DOSE  (80 MG) INTRATHECAL INJECTIONS
     Route: 037

REACTIONS (2)
  - Off label use [Unknown]
  - Hypothalamic pituitary adrenal axis suppression [Unknown]
